FAERS Safety Report 24882387 (Version 1)
Quarter: 2025Q1

REPORT INFORMATION
  Report Type: Spontaneous
  Country: US (occurrence: US)
  Receive Date: 20250124
  Receipt Date: 20250124
  Transmission Date: 20250409
  Serious: Yes (Other)
  Sender: GLAXOSMITHKLINE
  Company Number: US-GSKCCFUS-Case-02198870_AE-120799

PATIENT

DRUGS (2)
  1. ADVAIR HFA [Suspect]
     Active Substance: FLUTICASONE PROPIONATE\SALMETEROL XINAFOATE
     Indication: Product used for unknown indication
     Dosage: 2 PUFF(S), BID, 115MCG/21MCG
     Route: 055
  2. STELARA [Concomitant]
     Active Substance: USTEKINUMAB
     Indication: Colitis ulcerative

REACTIONS (6)
  - Colitis ulcerative [Unknown]
  - Flushing [Not Recovered/Not Resolved]
  - Dysphonia [Recovering/Resolving]
  - Aphonia [Unknown]
  - Aphasia [Unknown]
  - Intentional dose omission [Unknown]
